FAERS Safety Report 6672359-6 (Version None)
Quarter: 2010Q2

REPORT INFORMATION
  Report Type: 
  Country: None (occurrence: None)
  Receive Date: 20100408
  Receipt Date: 20100331
  Transmission Date: 20101027
  Serious: Yes (Other)
  Sender: FDA-Public Use
  Company Number: US-ASTRAZENECA-2009SE14772

PATIENT
  Age: 15232 Day
  Sex: Female
  Weight: 54.4 kg

DRUGS (4)
  1. SEROQUEL [Suspect]
     Route: 048
     Dates: start: 20070601
  2. CLONAZEPAM [Concomitant]
     Dates: start: 20070618
  3. CYMBALTA [Concomitant]
     Dates: start: 20070618
  4. TRAZODONE [Concomitant]
     Dates: start: 20070618

REACTIONS (2)
  - DIABETES MELLITUS [None]
  - POLYNEUROPATHY [None]
